FAERS Safety Report 4273068-3 (Version None)
Quarter: 2004Q1

REPORT INFORMATION
  Report Type: 
  Country: None (occurrence: None)
  Receive Date: 20040114
  Receipt Date: 20031217
  Transmission Date: 20041129
  Serious: Yes (Other)
  Sender: FDA-Public Use
  Company Number: HQWYE678317DEC03

PATIENT
  Age: 23 Year
  Sex: Female

DRUGS (3)
  1. SIROLIMUS (SIROLIMUS, SOLUTION) [Suspect]
     Indication: PROPHYLAXIS AGAINST TRANSPLANT REJECTION
     Dosage: 4 MG 1X PER 1 DAY
     Route: 048
     Dates: start: 20021216
  2. CYCLOSPORINE [Concomitant]
  3. PREDNISONE [Concomitant]

REACTIONS (3)
  - COMPLICATIONS OF MATERNAL EXPOSURE TO THERAPEUTIC DRUGS [None]
  - MATERNAL DRUGS AFFECTING FOETUS [None]
  - PREGNANCY [None]
